FAERS Safety Report 6624780-X (Version None)
Quarter: 2010Q1

REPORT INFORMATION
  Report Type: 
  Country: None (occurrence: None)
  Receive Date: 20100310
  Receipt Date: 20100301
  Transmission Date: 20100710
  Serious: Yes (Death, Other)
  Sender: FDA-Public Use
  Company Number: IT-ROCHE-688902

PATIENT

DRUGS (5)
  1. ENFUVIRTIDE [Suspect]
     Route: 065
  2. VIDEX [Suspect]
     Route: 065
  3. 3TC [Suspect]
     Route: 065
  4. LOPINAVIR [Suspect]
     Route: 065
  5. RTV [Suspect]
     Route: 065

REACTIONS (2)
  - DEATH [None]
  - TREATMENT FAILURE [None]
